FAERS Safety Report 4848420-5 (Version None)
Quarter: 2005Q4

REPORT INFORMATION
  Report Type: 
  Country: None (occurrence: None)
  Receive Date: 20051208
  Receipt Date: 20051201
  Transmission Date: 20060501
  Serious: Yes (Other)
  Sender: FDA-Public Use
  Company Number: US-GLAXOSMITHKLINE-A0584283A

PATIENT
  Age: 52 Year
  Sex: Female

DRUGS (7)
  1. PAROXETINE HCL [Suspect]
     Dosage: 40MG PER DAY
     Route: 048
     Dates: start: 20051101
  2. WELLBUTRIN [Concomitant]
  3. CLONAZEPAM [Concomitant]
  4. VIVELLE [Concomitant]
  5. RISPERDAL [Concomitant]
  6. IBUPROFEN [Concomitant]
  7. VIT E [Concomitant]

REACTIONS (3)
  - HAEMORRHAGE [None]
  - PRURITUS [None]
  - RASH [None]
